FAERS Safety Report 8319315-X (Version None)
Quarter: 2012Q2

REPORT INFORMATION
  Report Type: 
  Country: None (occurrence: None)
  Receive Date: 20120427
  Receipt Date: 20120419
  Transmission Date: 20120825
  Serious: No
  Sender: FDA-Public Use
  Company Number: US-BAYER-2012-039709

PATIENT

DRUGS (3)
  1. ACETAMINOPHEN [Concomitant]
  2. NAPROXEN SODIUM [Suspect]
     Indication: HEADACHE
     Route: 048
  3. SUDAFED 12 HOUR [Concomitant]

REACTIONS (1)
  - HEADACHE [None]
